FAERS Safety Report 5710215-8 (Version None)
Quarter: 2008Q2

REPORT INFORMATION
  Report Type: 
  Country: None (occurrence: None)
  Receive Date: 20080418
  Receipt Date: 20080407
  Transmission Date: 20081010
  Serious: Yes (Death, Life-Threatening)
  Sender: FDA-Public Use
  Company Number: JP-PFIZER INC-2008019839

PATIENT
  Sex: Female
  Weight: 50 kg

DRUGS (15)
  1. ZYVOX [Suspect]
     Indication: STAPHYLOCOCCAL INFECTION
     Dosage: DAILY DOSE:600MG
     Route: 048
     Dates: start: 20070702, end: 20070702
  2. ZYVOX [Suspect]
     Indication: STAPHYLOCOCCAL INFECTION
     Route: 042
     Dates: start: 20070705, end: 20070708
  3. ZYVOX [Suspect]
     Route: 042
     Dates: start: 20070711, end: 20070712
  4. FAMOTIDINE [Suspect]
     Indication: ABDOMINAL PAIN UPPER
     Route: 042
     Dates: start: 20070705, end: 20070712
  5. SOLU-MEDROL [Concomitant]
     Route: 042
     Dates: start: 20070705, end: 20070707
  6. ELEMENMIC [Concomitant]
     Route: 042
     Dates: start: 20070705, end: 20070712
  7. PREDONINE [Concomitant]
     Route: 042
     Dates: start: 20070708, end: 20070712
  8. BAKTAR [Concomitant]
     Route: 048
     Dates: start: 20070701, end: 20070703
  9. POLAPREZINC [Concomitant]
     Route: 048
     Dates: start: 20070629, end: 20070705
  10. BIOFERMIN R [Concomitant]
     Route: 048
     Dates: start: 20070630, end: 20070705
  11. NEORAL [Concomitant]
     Route: 048
     Dates: end: 20070712
  12. ETRETINATE [Concomitant]
     Route: 048
     Dates: start: 20070602, end: 20070702
  13. AMLODIPINE BESILATE [Concomitant]
     Route: 048
     Dates: start: 20070706, end: 20070709
  14. INTEBAN [Concomitant]
     Dates: start: 20070710
  15. VANCOMYCIN [Concomitant]
     Route: 042
     Dates: start: 20070629, end: 20070701

REACTIONS (2)
  - CARDIAC FAILURE [None]
  - PANCYTOPENIA [None]
